FAERS Safety Report 6317394-2 (Version None)
Quarter: 2009Q3

REPORT INFORMATION
  Report Type: 
  Country: None (occurrence: None)
  Receive Date: 20090820
  Receipt Date: 20090820
  Transmission Date: 20100115
  Serious: No
  Sender: FDA-Public Use
  Company Number: None

PATIENT

DRUGS (8)
  1. FLOMAX [Suspect]
     Indication: PROSTATIC DISORDER
  2. DIPHENOTYLATE/ATROP [Concomitant]
  3. LISINOPRIL [Concomitant]
  4. ATENOLOL [Concomitant]
  5. AMLODIPINE [Concomitant]
  6. LOVASTATIN [Concomitant]
  7. NAPROXEN [Concomitant]
  8. AMITRIPTYLINE [Concomitant]

REACTIONS (1)
  - PAIN [None]
